FAERS Safety Report 9492099 (Version 2)
Quarter: 2013Q3

REPORT INFORMATION
  Report Type: Spontaneous
  Country: JP (occurrence: JP)
  Receive Date: 20130830
  Receipt Date: 20130916
  Transmission Date: 20140515
  Serious: Yes (Other)
  Sender: FDA-Public Use
  Company Number: JP-BAYER-2013-105362

PATIENT
  Sex: Female

DRUGS (4)
  1. BAYASPIRIN [Suspect]
     Indication: THROMBOSIS PROPHYLAXIS
     Dosage: DAILY DOSE 100 MG
     Route: 048
     Dates: start: 201202
  2. OCTOTIAMINE [Suspect]
     Indication: MUSCULOSKELETAL STIFFNESS
     Dosage: UNK
     Route: 048
  3. PLAVIX [Concomitant]
     Indication: THROMBOSIS PROPHYLAXIS
     Dosage: DAILY DOSE 75 MG
     Route: 048
     Dates: start: 201202, end: 201208
  4. ATORVASTATIN [Concomitant]
     Indication: HYPERLIPIDAEMIA
     Dosage: UNK
     Route: 048

REACTIONS (1)
  - Angioedema [Not Recovered/Not Resolved]
